FAERS Safety Report 17930552 (Version 1)
Quarter: 2020Q2

REPORT INFORMATION
  Report Type: Report from Study
  Country: US (occurrence: US)
  Receive Date: 20200623
  Receipt Date: 20200623
  Transmission Date: 20200714
  Serious: No
  Sender: FDA-Public Use
  Company Number: US-BIOVITRUM-2019US1439

PATIENT
  Sex: Female

DRUGS (11)
  1. PANTOPRAZOLE [Concomitant]
     Active Substance: PANTOPRAZOLE
  2. LIOTHYRONINE [Concomitant]
     Active Substance: LIOTHYRONINE
  3. MELATONIN [Concomitant]
     Active Substance: MELATONIN
  4. PROBIOTIC [Concomitant]
     Active Substance: PROBIOTICS NOS
  5. KINERET [Suspect]
     Active Substance: ANAKINRA
     Route: 058
     Dates: start: 20190610
  6. STOOL SOFTENER (DOCUSATE) [Concomitant]
     Active Substance: DOCUSATE
  7. IRON SUPPLEMENT [Concomitant]
     Active Substance: IRON
  8. METFORMIN [Concomitant]
     Active Substance: METFORMIN HYDROCHLORIDE
  9. ETODOLAC. [Concomitant]
     Active Substance: ETODOLAC
  10. DIPHENHYDRAMINE. [Concomitant]
     Active Substance: DIPHENHYDRAMINE
  11. LEVOTHYROXINE. [Concomitant]
     Active Substance: LEVOTHYROXINE
     Dosage: DOSE: 62.5 MCG

REACTIONS (2)
  - Tenderness [Unknown]
  - Injection site pain [Unknown]
